FAERS Safety Report 9166070 (Version 1)
Quarter: 2013Q1

REPORT INFORMATION
  Report Type: Spontaneous
  Country: US (occurrence: US)
  Receive Date: 20130315
  Receipt Date: 20130315
  Transmission Date: 20140127
  Serious: Yes (Life-Threatening)
  Sender: FDA-Public Use
  Company Number: US-BAYER-2013-031184

PATIENT
  Age: 44 Year
  Sex: Male

DRUGS (1)
  1. AVELOX [Suspect]
     Dosage: 400 MG, QD
     Route: 048

REACTIONS (2)
  - Hypersensitivity [Recovered/Resolved]
  - Cardiac arrest [Recovered/Resolved]
